FAERS Safety Report 13583082 (Version 2)
Quarter: 2017Q2

REPORT INFORMATION
  Report Type: Report from Study
  Country: US (occurrence: US)
  Receive Date: 20170525
  Receipt Date: 20170612
  Transmission Date: 20170830
  Serious: Yes (Death, Hospitalization)
  Sender: FDA-Public Use
  Company Number: US-EXELIXIS-CABO-17009123

PATIENT
  Sex: Female
  Weight: 47 kg

DRUGS (22)
  1. OXYCODONE [Concomitant]
     Active Substance: OXYCODONE
  2. CARAFATE [Concomitant]
     Active Substance: SUCRALFATE
  3. LASIX [Concomitant]
     Active Substance: FUROSEMIDE
  4. METOPROLOL. [Concomitant]
     Active Substance: METOPROLOL
  5. VALTREX [Concomitant]
     Active Substance: VALACYCLOVIR HYDROCHLORIDE
  6. VITAMIN D3 [Concomitant]
     Active Substance: CHOLECALCIFEROL
  7. CYCLOBENZAPRINE. [Concomitant]
     Active Substance: CYCLOBENZAPRINE
     Indication: MUSCLE SPASMS
  8. MOVANTIK [Concomitant]
     Active Substance: NALOXEGOL OXALATE
  9. MUPIROCIN. [Concomitant]
     Active Substance: MUPIROCIN
  10. CYMBALTA [Concomitant]
     Active Substance: DULOXETINE HYDROCHLORIDE
  11. ONDANSETRON [Concomitant]
     Active Substance: ONDANSETRON
  12. POLYETHYLENE GLYCOL 3350. [Concomitant]
     Active Substance: POLYETHYLENE GLYCOL 3350
  13. SPIRONOLACTONE. [Concomitant]
     Active Substance: SPIRONOLACTONE
  14. CABOMETYX [Suspect]
     Active Substance: CABOZANTINIB S-MALATE
     Dosage: 20 MG, QD
     Route: 048
     Dates: start: 201705, end: 201705
  15. OPDIVO [Concomitant]
     Active Substance: NIVOLUMAB
     Indication: GASTRIC CANCER
     Dosage: UNK
     Dates: start: 20170317
  16. LIDOCAINE/PRILOCAINE [Concomitant]
     Active Substance: LIDOCAINE\PRILOCAINE
  17. LORAZEPAM. [Concomitant]
     Active Substance: LORAZEPAM
  18. METANX [Concomitant]
     Active Substance: LEVOMEFOLATE CALCIUM\METHYLCOBALAMIN\PYRIDOXAL PHOSPHATE ANHYDROUS
  19. CABOMETYX [Suspect]
     Active Substance: CABOZANTINIB S-MALATE
     Indication: GASTRIC CANCER
     Dosage: 40 MG, QD
     Route: 048
     Dates: start: 20170330, end: 20170511
  20. ELIQUIS [Concomitant]
     Active Substance: APIXABAN
  21. GABAPENTIN. [Concomitant]
     Active Substance: GABAPENTIN
  22. PROTONIX [Concomitant]
     Active Substance: PANTOPRAZOLE SODIUM

REACTIONS (15)
  - Malignant neoplasm progression [Fatal]
  - Diarrhoea [Unknown]
  - Peripheral swelling [Unknown]
  - Pain [Unknown]
  - Decreased appetite [Unknown]
  - Hyponatraemia [Recovering/Resolving]
  - Nausea [Unknown]
  - Leukocytosis [Unknown]
  - Hepatic enzyme increased [Unknown]
  - Diplopia [Unknown]
  - Off label use [Unknown]
  - Mental status changes [Unknown]
  - Constipation [Unknown]
  - Hypersomnia [Unknown]
  - Exercise lack of [Unknown]
